FAERS Safety Report 25460447 (Version 2)
Quarter: 2025Q2

REPORT INFORMATION
  Report Type: Spontaneous
  Country: US (occurrence: US)
  Receive Date: 20250620
  Receipt Date: 20250625
  Transmission Date: 20250716
  Serious: Yes (Hospitalization)
  Sender: ELI LILLY AND COMPANY
  Company Number: US-ELI_LILLY_AND_COMPANY-US202506012437

PATIENT
  Age: 64 Year
  Sex: Female

DRUGS (15)
  1. HUMULIN 70/30 [Suspect]
     Active Substance: INSULIN HUMAN
     Indication: Type 2 diabetes mellitus
     Route: 065
     Dates: start: 2023
  2. HUMULIN 70/30 [Suspect]
     Active Substance: INSULIN HUMAN
     Indication: Type 2 diabetes mellitus
     Route: 065
     Dates: start: 2023
  3. HUMULIN 70/30 [Suspect]
     Active Substance: INSULIN HUMAN
     Indication: Type 2 diabetes mellitus
     Route: 065
     Dates: start: 2023
  4. HUMULIN 70/30 [Suspect]
     Active Substance: INSULIN HUMAN
     Indication: Type 2 diabetes mellitus
     Route: 065
     Dates: start: 2023
  5. HUMULIN 70/30 [Suspect]
     Active Substance: INSULIN HUMAN
     Indication: Type 2 diabetes mellitus
     Route: 065
     Dates: start: 2023
  6. HUMULIN 70/30 [Suspect]
     Active Substance: INSULIN HUMAN
     Indication: Type 2 diabetes mellitus
     Route: 065
     Dates: start: 2023
  7. HUMULIN 70/30 [Suspect]
     Active Substance: INSULIN HUMAN
     Indication: Type 2 diabetes mellitus
     Route: 065
     Dates: start: 2023
  8. HUMULIN 70/30 [Suspect]
     Active Substance: INSULIN HUMAN
     Route: 065
  9. HUMULIN 70/30 [Suspect]
     Active Substance: INSULIN HUMAN
     Route: 065
  10. HUMULIN 70/30 [Suspect]
     Active Substance: INSULIN HUMAN
     Route: 065
  11. HUMULIN 70/30 [Suspect]
     Active Substance: INSULIN HUMAN
     Route: 065
  12. HUMULIN 70/30 [Suspect]
     Active Substance: INSULIN HUMAN
     Route: 065
  13. HUMULIN 70/30 [Suspect]
     Active Substance: INSULIN HUMAN
     Route: 065
  14. HUMULIN 70/30 [Suspect]
     Active Substance: INSULIN HUMAN
     Route: 065
  15. HUMULIN 70/30 [Suspect]
     Active Substance: INSULIN HUMAN
     Route: 065

REACTIONS (2)
  - Loss of consciousness [Unknown]
  - Blood glucose increased [Unknown]

NARRATIVE: CASE EVENT DATE: 20250329
